FAERS Safety Report 10016115 (Version 1)
Quarter: 2014Q1

REPORT INFORMATION
  Report Type: Spontaneous
  Country: TR (occurrence: TR)
  Receive Date: 20140317
  Receipt Date: 20140317
  Transmission Date: 20141002
  Serious: Yes (Hospitalization, Other)
  Sender: FDA-Public Use
  Company Number: TR-WATSON-2014-04566

PATIENT
  Age: 41 Year
  Sex: Female
  Weight: 68 kg

DRUGS (3)
  1. FENTANYL (UNKNOWN) [Suspect]
     Indication: SPINAL ANAESTHESIA
     Dosage: 10 ?G, SINGLE
     Route: 050
  2. LEVOBUPIVACAINE [Interacting]
     Indication: SPINAL ANAESTHESIA
     Dosage: 14 MG, SINGLE
     Route: 050
  3. SODIUM CHLORIDE [Concomitant]
     Indication: PRODUCT USED FOR UNKNOWN INDICATION
     Dosage: 750 ML, 0.9% INFUSION
     Route: 042

REACTIONS (3)
  - Delayed recovery from anaesthesia [Recovered/Resolved]
  - Potentiating drug interaction [Recovered/Resolved]
  - Maternal exposure during delivery [Recovered/Resolved]
